FAERS Safety Report 9717460 (Version 2)
Quarter: 2013Q4

REPORT INFORMATION
  Report Type: Spontaneous
  Country: US (occurrence: US)
  Receive Date: 20131127
  Receipt Date: 20131127
  Transmission Date: 20140711
  Serious: No
  Sender: FDA-Public Use
  Company Number: US-GILEAD-2008-0019675

PATIENT
  Age: 70 Year
  Sex: Female
  Weight: 82.55 kg

DRUGS (12)
  1. LETAIRIS [Suspect]
     Indication: PULMONARY ARTERIAL HYPERTENSION
     Route: 048
     Dates: start: 20081210, end: 20090101
  2. CYMBALTA [Concomitant]
  3. LYRICA [Concomitant]
  4. REMODULIN [Concomitant]
  5. K-DUR [Concomitant]
  6. PRILOSEC OTC [Concomitant]
  7. CLONAZEPAM [Concomitant]
  8. LASIX [Concomitant]
  9. CELEBREX [Concomitant]
  10. METOPROLOL [Concomitant]
  11. IRON [Concomitant]
  12. SPIRONOLACTONE [Concomitant]

REACTIONS (7)
  - Feeling abnormal [Recovered/Resolved]
  - Feeling abnormal [Recovered/Resolved]
  - Weight increased [Recovered/Resolved]
  - Swelling [Recovered/Resolved]
  - Nasal congestion [Recovered/Resolved]
  - Constipation [Recovered/Resolved]
  - Headache [Recovered/Resolved]
